FAERS Safety Report 17652163 (Version 1)
Quarter: 2020Q2

REPORT INFORMATION
  Report Type: Spontaneous
  Country: CA (occurrence: CA)
  Receive Date: 20200409
  Receipt Date: 20200409
  Transmission Date: 20200713
  Serious: Yes (Other)
  Sender: FDA-Public Use
  Company Number: CA-TEVA-2020-CA-1219677

PATIENT
  Age: 77 Year
  Sex: Male

DRUGS (10)
  1. FINASTERIDE. [Concomitant]
     Active Substance: FINASTERIDE
  2. PAROXETINE HYDROCHLORIDE. [Concomitant]
     Active Substance: PAROXETINE HYDROCHLORIDE
  3. ASA [Concomitant]
     Active Substance: ASPIRIN
  4. OXAZEPAM. [Concomitant]
     Active Substance: OXAZEPAM
  5. ATROVENT [Concomitant]
     Active Substance: IPRATROPIUM BROMIDE
  6. DOXEPIN [Concomitant]
     Active Substance: DOXEPIN
  7. GABAPENTIN. [Suspect]
     Active Substance: GABAPENTIN
     Indication: PARAESTHESIA
     Dosage: 300 MILLIGRAM DAILY;
     Route: 048
  8. ISORDIL [Concomitant]
     Active Substance: ISOSORBIDE DINITRATE
  9. MOXIFLOXACIN HYDROCHLORIDE. [Concomitant]
     Active Substance: MOXIFLOXACIN HYDROCHLORIDE
  10. ROSUVASTATIN CALCIUM. [Concomitant]
     Active Substance: ROSUVASTATIN CALCIUM

REACTIONS (4)
  - Anxiety [Unknown]
  - Feeling abnormal [Unknown]
  - Off label use [Unknown]
  - Product use in unapproved indication [Unknown]
